FAERS Safety Report 8059251-X (Version None)
Quarter: 2012Q1

REPORT INFORMATION
  Report Type: 
  Country: None (occurrence: None)
  Receive Date: 20120113
  Receipt Date: 20120103
  Transmission Date: 20120608
  Serious: Yes (Death)
  Sender: FDA-Public Use
  Company Number: 09-AUR-09644

PATIENT
  Age: 32 Year
  Sex: Male

DRUGS (7)
  1. LEXAPRO [Suspect]
     Indication: PRODUCT USED FOR UNKNOWN INDICATION
  2. DILANTIN [Suspect]
     Indication: PRODUCT USED FOR UNKNOWN INDICATION
  3. SEROQUEL [Suspect]
     Indication: PRODUCT USED FOR UNKNOWN INDICATION
  4. BENADRYL [Suspect]
     Indication: PRODUCT USED FOR UNKNOWN INDICATION
  5. CITALOPRAM HYDROBROMIDE [Suspect]
     Indication: PRODUCT USED FOR UNKNOWN INDICATION
     Dosage: 10 MG (10 MG, 1 IN 1 D),
  6. ZYPREXA [Suspect]
     Indication: PRODUCT USED FOR UNKNOWN INDICATION
  7. TRAZODONE HCL [Suspect]
     Indication: PRODUCT USED FOR UNKNOWN INDICATION

REACTIONS (2)
  - COMPLETED SUICIDE [None]
  - TOXICITY TO VARIOUS AGENTS [None]
